FAERS Safety Report 16101227 (Version 2)
Quarter: 2019Q3

REPORT INFORMATION
  Report Type: Report from Study
  Country: US (occurrence: US)
  Receive Date: 20190321
  Receipt Date: 20190814
  Transmission Date: 20191004
  Serious: Yes (Hospitalization, Other)
  Sender: FDA-Public Use
  Company Number: US-JNJFOC-20190323022

PATIENT

DRUGS (2)
  1. IBRUTINIB [Suspect]
     Active Substance: IBRUTINIB
     Indication: CHRONIC LYMPHOCYTIC LEUKAEMIA
     Dosage: MONOTHERAPY
     Route: 048
  2. VENETOCLAX. [Suspect]
     Active Substance: VENETOCLAX
     Indication: CHRONIC LYMPHOCYTIC LEUKAEMIA
     Route: 065

REACTIONS (33)
  - Hypertension [Unknown]
  - Nail disorder [Unknown]
  - Constipation [Unknown]
  - Cryptococcosis [Unknown]
  - Vomiting [Unknown]
  - Gastrooesophageal reflux disease [Unknown]
  - Appendicitis [Unknown]
  - Thrombocytopenia [Unknown]
  - Epistaxis [Unknown]
  - Bronchopulmonary aspergillosis [Unknown]
  - Transaminases increased [Unknown]
  - Fatigue [Unknown]
  - Myalgia [Unknown]
  - Rash [Unknown]
  - Stomatitis [Unknown]
  - Blood creatinine increased [Unknown]
  - Cellulitis [Unknown]
  - Febrile neutropenia [Unknown]
  - Atrial fibrillation [Unknown]
  - Pneumocystis jirovecii pneumonia [Unknown]
  - Pneumonia cryptococcal [Unknown]
  - Dry skin [Unknown]
  - Headache [Unknown]
  - Human anaplasmosis [Unknown]
  - Arthralgia [Unknown]
  - Diarrhoea [Unknown]
  - Pneumonia [Unknown]
  - Arthritis bacterial [Unknown]
  - Atrial flutter [Unknown]
  - Pyrexia [Unknown]
  - Neutropenia [Unknown]
  - Increased tendency to bruise [Unknown]
  - Nausea [Unknown]
